FAERS Safety Report 13449654 (Version 1)
Quarter: 2017Q2

REPORT INFORMATION
  Report Type: Spontaneous
  Country: US (occurrence: US)
  Receive Date: 20170417
  Receipt Date: 20170417
  Transmission Date: 20170830
  Serious: No
  Sender: FDA-Public Use
  Company Number: US-009507513-1703USA011306

PATIENT
  Sex: Female
  Weight: 73.92 kg

DRUGS (1)
  1. IMPLANON [Suspect]
     Active Substance: ETONOGESTREL
     Indication: CONTRACEPTION
     Dosage: 1 IMPLANT, EVERY 3 WEEKS
     Route: 059
     Dates: start: 20120514

REACTIONS (4)
  - Incorrect drug administration duration [Unknown]
  - Migration of implanted drug [Not Recovered/Not Resolved]
  - Device deployment issue [Not Recovered/Not Resolved]
  - Amenorrhoea [Not Recovered/Not Resolved]
